FAERS Safety Report 10594915 (Version 2)
Quarter: 2014Q4

REPORT INFORMATION
  Report Type: Spontaneous
  Country: CZ (occurrence: None)
  Receive Date: 20141104
  Receipt Date: 20141126
  Transmission Date: 20150529
  Serious: Yes (Other)
  Sender: FDA-Public Use
  Company Number: GTI002651

PATIENT
  Age: 30 Year
  Sex: Male

DRUGS (9)
  1. ACITRETINE [Concomitant]
  2. USTEKINUMAB [Concomitant]
     Active Substance: USTEKINUMAB
  3. METHOTREXATE (METHOTREXATE SODIUM) [Concomitant]
     Active Substance: METHOTREXATE SODIUM
  4. ETANERCEPT [Concomitant]
     Active Substance: ETANERCEPT
  5. IGIV (MANUFACTURER UNKNOWN) (IMMUNE GLOBULIN IV (HUMAN) , CAPRYLATE/ CHROMATOGRAPHY PURIFIED) [Suspect]
     Active Substance: HUMAN IMMUNOGLOBULIN G
     Indication: MULTIPLE SCLEROSIS
     Route: 042
  6. ADALIMUMAB [Concomitant]
     Active Substance: ADALIMUMAB
  7. CYCLOSPORINE. [Concomitant]
     Active Substance: CYCLOSPORINE
  8. CEFTRIAXONE. [Concomitant]
     Active Substance: CEFTRIAXONE
  9. CORTICOSTEROIDS [Concomitant]
     Active Substance: CORTICOSTEROID NOS

REACTIONS (7)
  - Psoriasis [None]
  - Joint swelling [None]
  - Chills [None]
  - Malaise [None]
  - Lymphadenopathy [None]
  - Erythrodermic psoriasis [None]
  - Rebound effect [None]
